FAERS Safety Report 8838731 (Version 3)
Quarter: 2014Q3

REPORT INFORMATION
  Report Type: Spontaneous
  Country: US (occurrence: US)
  Receive Date: 20121012
  Receipt Date: 20140707
  Transmission Date: 20150326
  Serious: Yes (Hospitalization, Disabling, Other)
  Sender: FDA-Public Use
  Company Number: US-009507513-2010SP031888

PATIENT
  Sex: Female
  Weight: 78 kg

DRUGS (5)
  1. TRILEPTAL [Concomitant]
     Active Substance: OXCARBAZEPINE
     Indication: MIGRAINE PROPHYLAXIS
     Dates: start: 2005
  2. NUVARING [Suspect]
     Active Substance: ETHINYL ESTRADIOL\ETONOGESTREL
     Indication: MIGRAINE
  3. FENTANYL. [Suspect]
     Active Substance: FENTANYL
     Indication: PRODUCT USED FOR UNKNOWN INDICATION
     Route: 042
     Dates: end: 200905
  4. NUVARING [Suspect]
     Active Substance: ETHINYL ESTRADIOL\ETONOGESTREL
     Indication: CONTRACEPTION
     Dosage: 1 DF, QM
     Route: 067
     Dates: start: 20081209, end: 20090304
  5. ZOLOFT [Concomitant]
     Active Substance: SERTRALINE HYDROCHLORIDE
     Indication: ANXIETY
     Dosage: 50 MG, QD

REACTIONS (38)
  - Convulsion [Unknown]
  - Syncope [Unknown]
  - Anaemia [Unknown]
  - Pulmonary infarction [Unknown]
  - Bronchitis [Unknown]
  - Abdominal pain lower [Unknown]
  - Subcutaneous emphysema [Unknown]
  - Herpes simplex [Unknown]
  - Haemoptysis [Unknown]
  - Upper respiratory tract infection [Unknown]
  - Pain [Unknown]
  - Mental disorder [Unknown]
  - Thermal burn [Unknown]
  - Antiphospholipid antibodies positive [Unknown]
  - Vomiting [Unknown]
  - Skin abrasion [Unknown]
  - Dyspnoea [Recovering/Resolving]
  - Musculoskeletal chest pain [Unknown]
  - Asthma [Unknown]
  - Cardiomegaly [Unknown]
  - Pericardial effusion [Recovering/Resolving]
  - Occipital neuralgia [Unknown]
  - Respiratory disorder [Unknown]
  - Hypotension [Unknown]
  - Streptococcal infection [Unknown]
  - Malaise [Unknown]
  - Atypical pneumonia [Unknown]
  - Pulmonary granuloma [Unknown]
  - Sinus tachycardia [Not Recovered/Not Resolved]
  - Ligament sprain [Unknown]
  - Migraine with aura [Unknown]
  - Atelectasis [Recovered/Resolved]
  - Pulmonary embolism [Recovering/Resolving]
  - Dizziness [Not Recovered/Not Resolved]
  - Infection [Unknown]
  - Acute sinusitis [Unknown]
  - Nasopharyngitis [Unknown]
  - Hypersensitivity [Unknown]

NARRATIVE: CASE EVENT DATE: 200812
